FAERS Safety Report 8960427 (Version 2)
Quarter: 2012Q4

REPORT INFORMATION
  Report Type: Report from Study
  Country: JP (occurrence: JP)
  Receive Date: 20121211
  Receipt Date: 20121226
  Transmission Date: 20130627
  Serious: Yes (Death)
  Sender: FDA-Public Use
  Company Number: JP-ALLERGAN-1217279US

PATIENT
  Age: 87 Year
  Sex: Male

DRUGS (1)
  1. BIMATOPROST [Suspect]
     Indication: PSEUDOEXFOLIATION GLAUCOMA
     Dosage: 1 Gtt, qpm
     Route: 047
     Dates: start: 20111014, end: 20120905

REACTIONS (1)
  - Lung cancer metastatic [Fatal]
